FAERS Safety Report 9205760 (Version 2)
Quarter: 2013Q2

REPORT INFORMATION
  Report Type: Spontaneous
  Country: JP (occurrence: None)
  Receive Date: 20130401
  Receipt Date: 20130415
  Transmission Date: 20140414
  Serious: Yes (Disabling)
  Sender: FDA-Public Use
  Company Number: TPA2013A02397

PATIENT
  Age: 80 Year
  Sex: Male

DRUGS (3)
  1. FEBURIC (FEBUXOSTAT) [Suspect]
     Indication: HYPERURICAEMIA
     Dosage: 10 MG (10 MG, 1 IN 1 D)  PER ORAL
     Route: 048
     Dates: start: 20120919, end: 20121017
  2. CALBLOCK (AZELNIDIPINE) [Suspect]
     Dosage: 16 MG ( 16 MG, 1 IN 1 D), PER ORAL
     Route: 048
     Dates: start: 20120822
  3. NU-LOTAN (LOSARTAN POTASSIUM) [Concomitant]

REACTIONS (1)
  - Bladder cancer [None]
